FAERS Safety Report 16233090 (Version 1)
Quarter: 2019Q2

REPORT INFORMATION
  Report Type: Spontaneous
  Country: US (occurrence: US)
  Receive Date: 20190423
  Receipt Date: 20190423
  Transmission Date: 20190711
  Serious: Yes (Other)
  Sender: FDA-Public Use
  Company Number: None

PATIENT
  Age: 59 Year
  Sex: Female
  Weight: 66.15 kg

DRUGS (2)
  1. LORAZEPAM. [Suspect]
     Active Substance: LORAZEPAM
  2. VITAMIN D NOS [Suspect]
     Active Substance: VITAMIN D NOS
     Indication: PRODUCT USED FOR UNKNOWN INDICATION
     Dosage: ?          QUANTITY:26 TABLET(S);?
     Route: 048
     Dates: start: 20190422, end: 20190422

REACTIONS (4)
  - Product dispensing error [None]
  - Sedation [None]
  - Wrong product administered [None]
  - Headache [None]

NARRATIVE: CASE EVENT DATE: 20190422
